FAERS Safety Report 15713983 (Version 1)
Quarter: 2018Q4

REPORT INFORMATION
  Report Type: Spontaneous
  Country: CA (occurrence: CA)
  Receive Date: 20181212
  Receipt Date: 20181212
  Transmission Date: 20190205
  Serious: Yes (Hospitalization, Other)
  Sender: FDA-Public Use
  Company Number: CA-PFIZER INC-2018508260

PATIENT
  Age: 85 Year
  Sex: Male

DRUGS (13)
  1. ESBRIET [Interacting]
     Active Substance: PIRFENIDONE
     Dosage: 534 MG, 3X/DAY
     Route: 048
  2. ESBRIET [Interacting]
     Active Substance: PIRFENIDONE
     Dosage: 801 MG, 3X/DAY
     Route: 048
  3. ESBRIET [Interacting]
     Active Substance: PIRFENIDONE
     Dosage: UNK
     Route: 048
  4. ESBRIET [Interacting]
     Active Substance: PIRFENIDONE
     Dosage: 534 MG, 3X/DAY
     Route: 048
  5. ESBRIET [Interacting]
     Active Substance: PIRFENIDONE
     Dosage: 534 MG, 3X/DAY
     Route: 048
  6. LORAZEPAM. [Suspect]
     Active Substance: LORAZEPAM
     Indication: BACK PAIN
     Dosage: UNK
     Route: 065
  7. ESBRIET [Interacting]
     Active Substance: PIRFENIDONE
     Indication: IDIOPATHIC PULMONARY FIBROSIS
     Dosage: 267 MG, 3X/DAY
     Route: 048
  8. ESBRIET [Interacting]
     Active Substance: PIRFENIDONE
     Dosage: 267 MG, 3X/DAY
     Route: 048
  9. ESBRIET [Interacting]
     Active Substance: PIRFENIDONE
     Dosage: UNK
     Route: 048
  10. WARFARIN [Interacting]
     Active Substance: WARFARIN
     Dosage: UNK
     Route: 065
  11. DICLOFENAC [Interacting]
     Active Substance: DICLOFENAC
     Dosage: UNK
     Route: 065
  12. DILAUDID [Interacting]
     Active Substance: HYDROMORPHONE HYDROCHLORIDE
     Indication: INTERVERTEBRAL DISC DISORDER
     Dosage: UNK
     Route: 065
  13. TYLENOL WITH CODEINE [Interacting]
     Active Substance: ACETAMINOPHEN\CODEINE PHOSPHATE
     Indication: INTERVERTEBRAL DISC DISORDER
     Dosage: UNK
     Route: 065

REACTIONS (22)
  - Drug interaction [Unknown]
  - Dyspnoea [Unknown]
  - Asthenia [Unknown]
  - Fatigue [Unknown]
  - Retinal detachment [Unknown]
  - Decreased appetite [Unknown]
  - Heart rate increased [Unknown]
  - Abdominal distension [Unknown]
  - Eye haemorrhage [Unknown]
  - Eye pain [Unknown]
  - Diarrhoea [Unknown]
  - Eructation [Unknown]
  - Lower respiratory tract infection [Unknown]
  - Abdominal discomfort [Unknown]
  - Feeling abnormal [Unknown]
  - International normalised ratio decreased [Unknown]
  - Nasopharyngitis [Unknown]
  - Dizziness [Unknown]
  - Lung infection [Unknown]
  - Malaise [Unknown]
  - Chest pain [Unknown]
  - Intervertebral disc disorder [Unknown]
